FAERS Safety Report 8413231-0 (Version None)
Quarter: 2012Q2

REPORT INFORMATION
  Report Type: 
  Country: None (occurrence: None)
  Receive Date: 20120605
  Receipt Date: 20120523
  Transmission Date: 20120825
  Serious: No
  Sender: FDA-Public Use
  Company Number: US-ASTRAZENECA-2012SE33369

PATIENT
  Sex: Female
  Weight: 81.6 kg

DRUGS (6)
  1. ATENOLOL [Concomitant]
     Indication: CEREBROVASCULAR ACCIDENT PROPHYLAXIS
  2. ZOCOR [Concomitant]
     Indication: BLOOD CHOLESTEROL
  3. METFORMIN HCL [Concomitant]
     Indication: DIABETES MELLITUS
  4. MALOXAKIN [Concomitant]
     Indication: ARTHRALGIA
  5. ARIMIDEX [Suspect]
     Indication: BREAST CANCER
     Route: 048
     Dates: start: 20060101, end: 20120513
  6. ENALAPRIL MALEATE [Concomitant]
     Indication: BLOOD PRESSURE

REACTIONS (4)
  - DIABETES MELLITUS [None]
  - ARTHRALGIA [None]
  - BLOOD GLUCOSE FLUCTUATION [None]
  - HYPERHIDROSIS [None]
